FAERS Safety Report 5074528-8 (Version None)
Quarter: 2006Q3

REPORT INFORMATION
  Report Type: 
  Country: None (occurrence: None)
  Receive Date: 20060803
  Receipt Date: 20060719
  Transmission Date: 20061208
  Serious: Yes (Other)
  Sender: FDA-Public Use
  Company Number: 2006S1005749

PATIENT
  Age: 36 Year
  Sex: Male
  Weight: 95.2554 kg

DRUGS (9)
  1. FENTANYL [Suspect]
     Indication: FLANK PAIN
     Dosage: 50 UG/HR; Q3D; TRANS
     Route: 062
     Dates: start: 20060101
  2. FENTANYL [Suspect]
     Indication: PAIN
     Dosage: 50 UG/HR; Q3D; TRANS
     Route: 062
     Dates: start: 20060101
  3. FENTANYL TRANSDERMAL SYSTEM [Suspect]
     Indication: FLANK PAIN
     Dosage: 100 UG/HR; Q3D; TRANS
     Route: 062
     Dates: start: 20060101
  4. FENTANYL TRANSDERMAL SYSTEM [Suspect]
     Indication: PAIN
     Dosage: 100 UG/HR; Q3D; TRANS
     Route: 062
     Dates: start: 20060101
  5. MORPHINE [Concomitant]
  6. FLUOXETINE [Concomitant]
  7. METOPROLOL SUCCINATE [Concomitant]
  8. ALPRAZOLAM [Concomitant]
  9. ACETAMINOPHEN [Concomitant]

REACTIONS (3)
  - DRUG WITHDRAWAL SYNDROME [None]
  - INADEQUATE ANALGESIA [None]
  - PHARMACEUTICAL PRODUCT COMPLAINT [None]
